FAERS Safety Report 25861319 (Version 1)
Quarter: 2025Q3

REPORT INFORMATION
  Report Type: Spontaneous
  Country: US (occurrence: US)
  Receive Date: 20250929
  Receipt Date: 20250929
  Transmission Date: 20251020
  Serious: No
  Sender: ABBVIE
  Company Number: US-ABBVIE-6472900

PATIENT
  Sex: Female

DRUGS (1)
  1. VRAYLAR [Suspect]
     Active Substance: CARIPRAZINE
     Indication: Major depression
     Route: 048

REACTIONS (5)
  - Oxygen saturation decreased [Unknown]
  - Adverse drug reaction [Unknown]
  - Dyspnoea [Unknown]
  - Drooling [Unknown]
  - Pollakiuria [Unknown]
